FAERS Safety Report 9284225 (Version 1)
Quarter: 2013Q2

REPORT INFORMATION
  Report Type: Spontaneous
  Country: DE (occurrence: DE)
  Receive Date: 20130510
  Receipt Date: 20130510
  Transmission Date: 20140414
  Serious: Yes (Hospitalization)
  Sender: FDA-Public Use
  Company Number: DE-ASTRAZENECA-2013SE31806

PATIENT
  Age: 70 Year
  Sex: Female

DRUGS (12)
  1. SEROQUEL [Suspect]
     Route: 048
     Dates: start: 201007, end: 20120830
  2. SEROQUEL [Suspect]
     Route: 048
     Dates: start: 20120831, end: 20120913
  3. SEROQUEL [Suspect]
     Route: 048
     Dates: start: 20120914, end: 20121105
  4. SEROQUEL [Suspect]
     Route: 048
     Dates: start: 20121106, end: 20121111
  5. SEROQUEL [Suspect]
     Route: 048
     Dates: start: 20121112, end: 20121127
  6. APONAL [Suspect]
     Route: 048
     Dates: start: 20121012, end: 20121015
  7. APONAL [Suspect]
     Route: 048
     Dates: start: 20121016, end: 20121028
  8. APONAL [Suspect]
     Route: 048
     Dates: start: 20121029, end: 20121101
  9. APONAL [Suspect]
     Route: 048
     Dates: start: 20121102, end: 20121112
  10. APONAL [Suspect]
     Route: 048
     Dates: start: 20121113, end: 20121115
  11. APONAL [Suspect]
     Route: 048
     Dates: start: 20121116, end: 20121202
  12. L-THYROXIN [Concomitant]
     Route: 048

REACTIONS (3)
  - Flatulence [Recovered/Resolved]
  - Faecaloma [Unknown]
  - Constipation [Recovered/Resolved]
